FAERS Safety Report 17159277 (Version 1)
Quarter: 2019Q4

REPORT INFORMATION
  Report Type: Spontaneous
  Country: US (occurrence: US)
  Receive Date: 20191215
  Receipt Date: 20191215
  Transmission Date: 20200122
  Serious: Yes (Hospitalization)
  Sender: FDA-Public Use
  Company Number: None

PATIENT
  Age: 82 Year
  Sex: Female
  Weight: 86.3 kg

DRUGS (5)
  1. RIVAROXABAN [Suspect]
     Active Substance: RIVAROXABAN
     Indication: ATRIAL FIBRILLATION
     Route: 048
     Dates: start: 20160429
  2. VITAMIN C 1000MG BID [Concomitant]
  3. AMIODARONE 200MG DAILY [Concomitant]
  4. INSULIN GLARGINE 25UNITS DAILY [Concomitant]
  5. GLYBURIDE/METFORMIN 5/500MG 2 TABLETS BID [Concomitant]

REACTIONS (6)
  - Diarrhoea [None]
  - Gastrointestinal haemorrhage [None]
  - Pneumonia [None]
  - Hypokalaemia [None]
  - Cardiac failure congestive [None]
  - Pyrexia [None]

NARRATIVE: CASE EVENT DATE: 20160723
